FAERS Safety Report 10102065 (Version 3)
Quarter: 2014Q3

REPORT INFORMATION
  Report Type: Report from Study
  Country: JP (occurrence: JP)
  Receive Date: 20140424
  Receipt Date: 20140828
  Transmission Date: 20150326
  Serious: Yes (Death, Hospitalization)
  Sender: FDA-Public Use
  Company Number: JP-EISAI INC-E2020-12225-SOL-JP

PATIENT
  Age: 79 Year
  Sex: Female

DRUGS (9)
  1. ARICEPT [Suspect]
     Active Substance: DONEPEZIL HYDROCHLORIDE
     Route: 048
     Dates: start: 20120409
  2. SELBEX [Concomitant]
     Active Substance: TEPRENONE
  3. BONALON [Concomitant]
     Active Substance: ALENDRONATE SODIUM
  4. WARKMIN [Concomitant]
     Active Substance: ALFACALCIDOL
  5. D-ALFA [Concomitant]
     Route: 048
  6. MEMARY [Concomitant]
     Active Substance: MEMANTINE HYDROCHLORIDE
     Indication: DEMENTIA ALZHEIMER^S TYPE
  7. LIPITOR [Concomitant]
     Active Substance: ATORVASTATIN CALCIUM
  8. SHAKUYAKUKANZOTO [Concomitant]
     Active Substance: HERBALS
  9. ARICEPT [Suspect]
     Active Substance: DONEPEZIL HYDROCHLORIDE
     Indication: DEMENTIA ALZHEIMER^S TYPE
     Route: 048
     Dates: start: 20120326, end: 20120408

REACTIONS (2)
  - Subdural haematoma [Recovered/Resolved]
  - Sudden death [Fatal]

NARRATIVE: CASE EVENT DATE: 20121010
